FAERS Safety Report 12632879 (Version 2)
Quarter: 2016Q3

REPORT INFORMATION
  Report Type: Spontaneous
  Country: US (occurrence: US)
  Receive Date: 20160808
  Receipt Date: 20160808
  Transmission Date: 20161109
  Serious: No
  Sender: FDA-Public Use
  Company Number: US-BEH-2015057362

PATIENT
  Sex: Male
  Weight: 96 kg

DRUGS (17)
  1. INSPRA [Concomitant]
     Active Substance: EPLERENONE
  2. CARVEDILOL. [Concomitant]
     Active Substance: CARVEDILOL
  3. LEVAQUIN [Concomitant]
     Active Substance: LEVOFLOXACIN
  4. ACETAMINOPHEN. [Concomitant]
     Active Substance: ACETAMINOPHEN
  5. DIPHENHYDRAMINE. [Concomitant]
     Active Substance: DIPHENHYDRAMINE
  6. CRESTOR [Concomitant]
     Active Substance: ROSUVASTATIN CALCIUM
  7. CHILD ASPIRIN [Concomitant]
  8. MINOCIN [Concomitant]
     Active Substance: MINOCYCLINE HYDROCHLORIDE
  9. HIZENTRA [Suspect]
     Active Substance: HUMAN IMMUNOGLOBULIN G
     Indication: HYPOGAMMAGLOBULINAEMIA
     Route: 058
  10. LIDOCAINE. [Concomitant]
     Active Substance: LIDOCAINE
  11. HIZENTRA [Suspect]
     Active Substance: HUMAN IMMUNOGLOBULIN G
     Indication: HYPOGAMMAGLOBULINAEMIA
     Route: 058
  12. EPIPEN [Concomitant]
     Active Substance: EPINEPHRINE
  13. KLONOPIN [Concomitant]
     Active Substance: CLONAZEPAM
  14. AVAPRO [Concomitant]
     Active Substance: IRBESARTAN
  15. TAMIFLU [Concomitant]
     Active Substance: OSELTAMIVIR PHOSPHATE
  16. PLAQUENIL [Concomitant]
     Active Substance: HYDROXYCHLOROQUINE SULFATE
  17. ZETIA [Concomitant]
     Active Substance: EZETIMIBE

REACTIONS (2)
  - Headache [Unknown]
  - Viral infection [Unknown]
